FAERS Safety Report 11034112 (Version 1)
Quarter: 2015Q2

REPORT INFORMATION
  Report Type: Report from Study
  Country: DE (occurrence: DE)
  Receive Date: 20150415
  Receipt Date: 20150415
  Transmission Date: 20150821
  Serious: Yes (Hospitalization, Other)
  Sender: FDA-Public Use
  Company Number: DE-ABBVIE-15K-062-1355922-00

PATIENT
  Age: 52 Year
  Sex: Male
  Weight: 120 kg

DRUGS (5)
  1. HUMIRA [Suspect]
     Active Substance: ADALIMUMAB
     Route: 058
     Dates: start: 201305
  2. METOPROLOL [Suspect]
     Active Substance: METOPROLOL
     Indication: PRODUCT USED FOR UNKNOWN INDICATION
     Dosage: 1-0-1
     Route: 065
  3. HUMIRA [Suspect]
     Active Substance: ADALIMUMAB
     Indication: RHEUMATOID ARTHRITIS
     Route: 058
     Dates: start: 20120126, end: 201212
  4. ASPIRIN. [Suspect]
     Active Substance: ASPIRIN
     Indication: PRODUCT USED FOR UNKNOWN INDICATION
     Dosage: 1-0-0
     Route: 065
  5. INEGY [Suspect]
     Active Substance: EZETIMIBE\SIMVASTATIN
     Indication: PRODUCT USED FOR UNKNOWN INDICATION
     Dosage: 10/20 MG, 0-0-1
     Route: 065

REACTIONS (7)
  - Faecaloma [Recovered/Resolved]
  - Abdominal distension [Recovered/Resolved]
  - Appendicitis perforated [Unknown]
  - Ileus [Recovered/Resolved]
  - Abdominal mass [Unknown]
  - Diverticulitis [Recovered/Resolved]
  - Incisional hernia [Recovered/Resolved]

NARRATIVE: CASE EVENT DATE: 201302
